FAERS Safety Report 8990447 (Version 2)
Quarter: 2014Q2

REPORT INFORMATION
  Report Type: Spontaneous
  Country: FR (occurrence: FR)
  Receive Date: 20121228
  Receipt Date: 20131120
  Transmission Date: 20141212
  Serious: Yes (Disabling)
  Sender: FDA-Public Use
  Company Number: FR-TEVA-249012ISR

PATIENT
  Age: 78 Year
  Sex: Female

DRUGS (10)
  1. CARBOPLATIN [Suspect]
     Indication: OVARIAN NEOPLASM
     Route: 042
     Dates: start: 20100402, end: 20100514
  2. PACLITAXEL [Suspect]
     Indication: OVARIAN NEOPLASM
     Route: 042
     Dates: start: 20100402, end: 20100514
  3. OFLOXACIN [Suspect]
     Route: 048
     Dates: start: 20100522, end: 20100530
  4. METRONIDAZOLE [Suspect]
     Dosage: 1500 MILLIGRAM DAILY;
     Route: 048
     Dates: start: 20100531, end: 20100617
  5. AMOXICILLIN W/CLAVULANIC ACID [Suspect]
     Route: 048
     Dates: start: 20100522, end: 20100605
  6. TEICOPLANIN [Suspect]
     Route: 051
     Dates: start: 20100606, end: 20100617
  7. ESOMEPRAZOLE MAGNESIUM [Suspect]
     Route: 048
     Dates: start: 20100531, end: 20100614
  8. GENTAMICIN [Suspect]
     Dates: start: 20100606
  9. HYDROCORTISONE [Suspect]
     Route: 048
     Dates: start: 20100522, end: 20100530
  10. FUROSEMIDE [Concomitant]

REACTIONS (4)
  - Neuropathy peripheral [Not Recovered/Not Resolved]
  - Gastrointestinal haemorrhage [Unknown]
  - Adrenal insufficiency [Unknown]
  - Generalised oedema [Unknown]
